FAERS Safety Report 12780523 (Version 1)
Quarter: 2016Q3

REPORT INFORMATION
  Report Type: Report from Study
  Country: US (occurrence: US)
  Receive Date: 20160926
  Receipt Date: 20160926
  Transmission Date: 20161109
  Serious: Yes (Hospitalization)
  Sender: FDA-Public Use
  Company Number: US-ABBVIE-16K-163-1704056-00

PATIENT
  Sex: Female

DRUGS (3)
  1. HUMIRA [Suspect]
     Active Substance: ADALIMUMAB
     Indication: PSORIASIS
     Dosage: DAY 1
     Route: 058
     Dates: start: 20160813, end: 20160813
  2. HUMIRA [Suspect]
     Active Substance: ADALIMUMAB
     Route: 058
     Dates: start: 20160827, end: 20160827
  3. HUMIRA [Suspect]
     Active Substance: ADALIMUMAB
     Route: 058
     Dates: start: 20160903

REACTIONS (13)
  - Frustration tolerance decreased [Unknown]
  - Fatigue [Unknown]
  - Psoriasis [Unknown]
  - Helplessness [Unknown]
  - Wound haemorrhage [Unknown]
  - Activities of daily living impaired [Unknown]
  - Pain of skin [Unknown]
  - Hepatic mass [Unknown]
  - Dehydration [Unknown]
  - Hyperhidrosis [Not Recovered/Not Resolved]
  - Anger [Unknown]
  - Insomnia [Unknown]
  - Emotional distress [Unknown]

NARRATIVE: CASE EVENT DATE: 2016
